FAERS Safety Report 16089196 (Version 2)
Quarter: 2019Q4

REPORT INFORMATION
  Report Type: Report from Study
  Country: FR (occurrence: FR)
  Receive Date: 20190319
  Receipt Date: 20191001
  Transmission Date: 20200122
  Serious: Yes (Death, Other)
  Sender: FDA-Public Use
  Company Number: FR-JAZZ-2019-FR-003722

PATIENT

DRUGS (2)
  1. DEFITELIO [Suspect]
     Active Substance: DEFIBROTIDE SODIUM
     Indication: VENOOCCLUSIVE LIVER DISEASE
     Dosage: 25 MG/KG/DAILY
     Dates: start: 20180329, end: 20180510
  2. URSOLVAN [Concomitant]
     Active Substance: URSODIOL
     Indication: VENOOCCLUSIVE LIVER DISEASE

REACTIONS (4)
  - Acute graft versus host disease [Unknown]
  - Sepsis [Unknown]
  - Multiple organ dysfunction syndrome [Fatal]
  - Cystitis haemorrhagic [Unknown]

NARRATIVE: CASE EVENT DATE: 20180418
